FAERS Safety Report 5188819-3 (Version None)
Quarter: 2006Q4

REPORT INFORMATION
  Report Type: 
  Country: None (occurrence: None)
  Receive Date: 20061215
  Receipt Date: 20061207
  Transmission Date: 20070319
  Serious: Yes (Other)
  Sender: FDA-Public Use
  Company Number: 2006SP008065

PATIENT
  Sex: Female

DRUGS (3)
  1. NASONEX [Suspect]
     Indication: DRUG USE FOR UNKNOWN INDICATION
     Dosage: 50 MCG; NAS
     Route: 045
  2. AUGMENTIN '125' [Concomitant]
  3. RHINOCORT [Concomitant]

REACTIONS (3)
  - CONDITION AGGRAVATED [None]
  - INFECTION [None]
  - NASAL SEPTUM DISORDER [None]
